FAERS Safety Report 7329746-2 (Version None)
Quarter: 2011Q1

REPORT INFORMATION
  Report Type: 
  Country: None (occurrence: None)
  Receive Date: 20110223
  Receipt Date: 20110210
  Transmission Date: 20110831
  Serious: Yes (Life-Threatening, Other)
  Sender: FDA-Public Use
  Company Number: DSU-2010-05105

PATIENT
  Sex: Male
  Weight: 90 kg

DRUGS (5)
  1. OLMETEC PLUS(HYDROCHLOROTHIAZIDE, OLMESARTAN [Suspect]
     Indication: HYPERTENSION
     Dosage: 40/12.5 MG (QD),PER ORAL,  40/25 MG (QD),PER ORAL
     Route: 048
     Dates: start: 20100201, end: 20100201
  2. OLMETEC PLUS(HYDROCHLOROTHIAZIDE, OLMESARTAN [Suspect]
     Indication: HYPERTENSION
     Dosage: 40/12.5 MG (QD),PER ORAL,  40/25 MG (QD),PER ORAL
     Route: 048
     Dates: end: 20100101
  3. OLMETEC (OLMESARTAN MEDOXOMIL)(TABLET)(OLMESARTAN MEDOXOMIL) [Suspect]
     Indication: PRODUCT USED FOR UNKNOWN INDICATION
     Dosage: 20 MG (20 MG,QD),PER ORAL, 40 MG (40 MG,QD), PER ORAL
     Route: 048
     Dates: start: 20091001
  4. OLMETEC (OLMESARTAN MEDOXOMIL)(TABLET)(OLMESARTAN MEDOXOMIL) [Suspect]
     Indication: PRODUCT USED FOR UNKNOWN INDICATION
     Dosage: 20 MG (20 MG,QD),PER ORAL, 40 MG (40 MG,QD), PER ORAL
     Route: 048
     Dates: end: 20091001
  5. NOTEN(ATENOLOL) (50 MILLIGRAM) (ATENOLOL) [Suspect]
     Indication: ISCHAEMIA

REACTIONS (20)
  - SYNCOPE [None]
  - FLUID RETENTION [None]
  - BLOOD PRESSURE INADEQUATELY CONTROLLED [None]
  - COUGH [None]
  - TOTAL LUNG CAPACITY DECREASED [None]
  - WEIGHT INCREASED [None]
  - BLOOD PRESSURE FLUCTUATION [None]
  - BLOOD PRESSURE INCREASED [None]
  - FATIGUE [None]
  - DYSPNOEA [None]
  - RENAL IMPAIRMENT [None]
  - NEPHROLITHIASIS [None]
  - HYPERSOMNIA [None]
  - HYPERHIDROSIS [None]
  - ISCHAEMIA [None]
  - PRODUCTIVE COUGH [None]
  - HEADACHE [None]
  - LETHARGY [None]
  - TACHYCARDIA [None]
  - DIZZINESS [None]
